FAERS Safety Report 20683208 (Version 2)
Quarter: 2022Q2

REPORT INFORMATION
  Report Type: Spontaneous
  Country: GB (occurrence: GB)
  Receive Date: 20220407
  Receipt Date: 20220616
  Transmission Date: 20220721
  Serious: Yes (Other)
  Sender: FDA-Public Use
  Company Number: GB-SANOFI-01016070

PATIENT
  Age: 75 Year
  Sex: Female

DRUGS (5)
  1. SARCLISA [Suspect]
     Active Substance: ISATUXIMAB-IRFC
     Dosage: UNK
  2. POMALIDOMIDE [Suspect]
     Active Substance: POMALIDOMIDE
     Dosage: UNK
     Dates: start: 202111
  3. DEXAMETHASONE [Suspect]
     Active Substance: DEXAMETHASONE
     Dosage: UNK
     Dates: start: 202111
  4. LENALIDOMIDE [Suspect]
     Active Substance: LENALIDOMIDE
  5. DARATUMUMAB [Concomitant]
     Active Substance: DARATUMUMAB

REACTIONS (3)
  - Stevens-Johnson syndrome [Unknown]
  - Skin toxicity [Unknown]
  - Rash [Unknown]
